FAERS Safety Report 17882172 (Version 1)
Quarter: 2020Q2

REPORT INFORMATION
  Report Type: Spontaneous
  Country: IE (occurrence: IE)
  Receive Date: 20200610
  Receipt Date: 20200610
  Transmission Date: 20200714
  Serious: Yes (Disabling, Other)
  Sender: FDA-Public Use
  Company Number: IE-FRESENIUS KABI-FK202005762

PATIENT
  Age: 38 Year
  Sex: Female

DRUGS (5)
  1. LEVOBUPIVACAINE (MANUFACTURER UNKNOWN) [Suspect]
     Active Substance: LEVOBUPIVACAINE
     Dosage: 0.1 PERCENT AT 9.3 ML/H
     Route: 008
  2. FENTANYL (MANUFACTURER UNKNOWN) [Suspect]
     Active Substance: FENTANYL
     Dosage: 2 MG/ML AT 9.3 ML/H
     Route: 008
  3. LEVOBUPIVACAINE (MANUFACTURER UNKNOWN) [Suspect]
     Active Substance: LEVOBUPIVACAINE
     Dosage: 10 ML 0.25 PERCENT
     Route: 008
  4. FENTANYL (MANUFACTURER UNKNOWN) [Suspect]
     Active Substance: FENTANYL
     Indication: EPIDURAL ANAESTHESIA
     Route: 008
  5. LEVOBUPIVACAINE (MANUFACTURER UNKNOWN) [Suspect]
     Active Substance: LEVOBUPIVACAINE
     Indication: EPIDURAL ANAESTHESIA
     Dosage: 3 ML 0.25 PERCENT
     Route: 008

REACTIONS (4)
  - Tinnitus [Not Recovered/Not Resolved]
  - Deafness neurosensory [Not Recovered/Not Resolved]
  - Anaesthetic complication [Unknown]
  - Exposure during pregnancy [Recovered/Resolved]
